FAERS Safety Report 6175535-4 (Version None)
Quarter: 2009Q2

REPORT INFORMATION
  Report Type: 
  Country: None (occurrence: None)
  Receive Date: 20090501
  Receipt Date: 20090423
  Transmission Date: 20091009
  Serious: Yes (Hospitalization)
  Sender: FDA-Public Use
  Company Number: US-KINGPHARMUSA00001-K200900483

PATIENT
  Age: 48 Year

DRUGS (13)
  1. ALTACE [Suspect]
     Dosage: UNK
  2. ACETYLSALICYLIC ACID [Suspect]
  3. DIDANOSINE [Suspect]
  4. EFAVIRENZ [Suspect]
  5. KALETRA                            /01399701/ [Suspect]
     Dosage: UNK
  6. LAMIVUDINE [Suspect]
  7. NELFINAVIR [Suspect]
  8. STAVUDINE [Suspect]
  9. TENOFOVIR [Suspect]
  10. ZIDOVUDINE [Suspect]
  11. ATORVASTATIN [Concomitant]
     Dosage: 10 MG, UNK
  12. OMEGA-3                            /00931501/ [Concomitant]
     Dosage: UNK BQ, BID
  13. PRAVASTATIN [Concomitant]

REACTIONS (2)
  - DRUG RESISTANCE [None]
  - MYOCARDIAL INFARCTION [None]
